FAERS Safety Report 9421117 (Version 1)
Quarter: 2013Q3

REPORT INFORMATION
  Report Type: Report from Study
  Country: US (occurrence: US)
  Receive Date: 20130725
  Receipt Date: 20130725
  Transmission Date: 20140515
  Serious: Yes (Hospitalization)
  Sender: FDA-Public Use
  Company Number: PHHY2013US078678

PATIENT
  Age: 74 Year
  Sex: Female
  Weight: 68.6 kg

DRUGS (8)
  1. HYDROCHLOROTHIAZIDE [Suspect]
     Indication: HYPERTENSION
     Dosage: 25 MG, QD
     Route: 048
     Dates: start: 20121011, end: 20121012
  2. ALBUTEROL [Suspect]
     Indication: CHRONIC OBSTRUCTIVE PULMONARY DISEASE
     Dosage: 90 MG, AS REQUIRED
     Dates: start: 20120117
  3. PRIMIDONE [Concomitant]
     Indication: ESSENTIAL TREMOR
     Dosage: 50 MG, QD
     Route: 048
     Dates: start: 1998
  4. SERTRALINE [Concomitant]
     Indication: ANXIETY
     Dosage: 50 MG, QD
     Dates: start: 2005
  5. METOPROLOL [Concomitant]
     Indication: HEART RATE IRREGULAR
     Dosage: 50 MG, BID
     Dates: start: 199503
  6. MELOXICAM [Concomitant]
     Indication: OSTEOARTHRITIS
     Dosage: 7.5 MG, QD
     Dates: start: 201001
  7. EVISTA [Concomitant]
     Indication: OSTEOPENIA
     Dosage: 50 MG, QD
     Dates: start: 200609
  8. PULMICORT [Concomitant]
     Indication: CHRONIC OBSTRUCTIVE PULMONARY DISEASE
     Dosage: 360 MG, BID
     Dates: start: 20120102

REACTIONS (6)
  - Atrial fibrillation [Recovered/Resolved]
  - Hypotension [Recovered/Resolved]
  - Syncope [Recovered/Resolved]
  - Loss of consciousness [Unknown]
  - Dizziness [Unknown]
  - Asthenia [Unknown]
